FAERS Safety Report 5460146-6 (Version None)
Quarter: 2007Q3

REPORT INFORMATION
  Report Type: 
  Country: None (occurrence: None)
  Receive Date: 20070919
  Receipt Date: 20070523
  Transmission Date: 20080115
  Serious: No
  Sender: FDA-Public Use
  Company Number: US-ASTRAZENECA-2007UW12774

PATIENT
  Age: 33 Year
  Sex: Male
  Weight: 59 kg

DRUGS (2)
  1. SEROQUEL [Suspect]
     Indication: BIPOLAR DISORDER
     Route: 048
  2. LAMICTAL [Concomitant]

REACTIONS (4)
  - ANOREXIA [None]
  - PSYCHOMOTOR HYPERACTIVITY [None]
  - THERAPEUTIC PRODUCT INEFFECTIVE [None]
  - WEIGHT DECREASED [None]
